FAERS Safety Report 8904818 (Version 1)
Quarter: 2012Q4

REPORT INFORMATION
  Report Type: 
  Country: US (occurrence: US)
  Receive Date: 20121112
  Receipt Date: 20121112
  Transmission Date: 20130627
  Serious: Yes (Other)
  Sender: FDA-Public Use
  Company Number: US-PFIZER INC-2012277863

PATIENT
  Sex: Female

DRUGS (2)
  1. SOMAVERT [Suspect]
     Indication: ACROMEGALY
     Dosage: UNK
  2. OCTREOTIDE [Suspect]
     Dosage: UNK

REACTIONS (3)
  - Cardiac disorder [Unknown]
  - Pituitary tumour [Unknown]
  - Disease progression [Unknown]
